FAERS Safety Report 6996221-4 (Version None)
Quarter: 2010Q3

REPORT INFORMATION
  Report Type: 
  Country: None (occurrence: None)
  Receive Date: 20100918
  Receipt Date: 20090109
  Transmission Date: 20110219
  Serious: No
  Sender: FDA-Public Use
  Company Number: US-WYE-H07664009

PATIENT
  Sex: Female

DRUGS (1)
  1. PREMPRO [Suspect]
     Dosage: 0.3MG/1.5MG; 1 TABLET DAILY
     Route: 048

REACTIONS (3)
  - DECREASED ACTIVITY [None]
  - DRUG WITHDRAWAL SYNDROME [None]
  - INSOMNIA [None]
